FAERS Safety Report 16354878 (Version 13)
Quarter: 2020Q3

REPORT INFORMATION
  Report Type: Report from Study
  Country: CO (occurrence: CO)
  Receive Date: 20190524
  Receipt Date: 20200725
  Transmission Date: 20201102
  Serious: Yes (Other)
  Sender: FDA-Public Use
  Company Number: PHHY2018CO068124

PATIENT
  Age: 40 Year
  Sex: Female
  Weight: 68 kg

DRUGS (8)
  1. SIGNIFOR LAR [Suspect]
     Active Substance: PASIREOTIDE PAMOATE
     Dosage: 20 MG, QMO
     Route: 030
  2. OCTREOTIDE. [Suspect]
     Active Substance: OCTREOTIDE
     Indication: PRODUCT USED FOR UNKNOWN INDICATION
     Dosage: UNK
     Route: 065
  3. SIGNIFOR LAR [Suspect]
     Active Substance: PASIREOTIDE PAMOATE
     Dosage: 20 MG, UNK (EVERY 28 DAYS)
     Route: 030
  4. LEVOTHYROXINE. [Concomitant]
     Active Substance: LEVOTHYROXINE
     Indication: HYPOTHYROIDISM
     Dosage: 50 MG, UNK
     Route: 065
  5. SIGNIFOR LAR [Suspect]
     Active Substance: PASIREOTIDE PAMOATE
     Dosage: 25 MG, QMO
     Route: 030
     Dates: start: 20180625
  6. SIGNIFOR LAR [Suspect]
     Active Substance: PASIREOTIDE PAMOATE
     Indication: ACROMEGALY
     Dosage: 20 MG, (EVERY 28 DAYS)(AMPULE)
     Route: 030
     Dates: start: 201803
  7. SIGNIFOR LAR [Suspect]
     Active Substance: PASIREOTIDE PAMOATE
     Dosage: 25 MG, QMO
     Route: 030
  8. SIGNIFOR LAR [Suspect]
     Active Substance: PASIREOTIDE PAMOATE
     Dosage: 20 MG, EVERY 28 DAYS
     Route: 030

REACTIONS (29)
  - Syncope [Unknown]
  - Headache [Unknown]
  - Cardiac disorder [Unknown]
  - Malaise [Unknown]
  - Decreased appetite [Unknown]
  - Concomitant disease aggravated [Unknown]
  - Balance disorder [Unknown]
  - Swollen tongue [Unknown]
  - Visual field defect [Unknown]
  - Neoplasm [Unknown]
  - Discomfort [Unknown]
  - Eye pain [Unknown]
  - Dizziness [Unknown]
  - Influenza [Unknown]
  - Dental caries [Unknown]
  - Hormone level abnormal [Unknown]
  - Vomiting [Unknown]
  - Acromegaly [Unknown]
  - Dyspnoea [Unknown]
  - Toothache [Unknown]
  - Lacrimation increased [Unknown]
  - Pain [Unknown]
  - Mental disorder [Unknown]
  - Choking [Unknown]
  - Nasal disorder [Unknown]
  - Arthralgia [Recovered/Resolved]
  - Eye irritation [Unknown]
  - Eating disorder [Unknown]
  - Paraesthesia [Unknown]

NARRATIVE: CASE EVENT DATE: 201812
